FAERS Safety Report 5513809-8 (Version None)
Quarter: 2007Q4

REPORT INFORMATION
  Report Type: 
  Country: None (occurrence: None)
  Receive Date: 20071113
  Receipt Date: 20071101
  Transmission Date: 20080405
  Serious: Yes (Other)
  Sender: FDA-Public Use
  Company Number: US-WYE-H00994207

PATIENT
  Sex: Female
  Weight: 74.46 kg

DRUGS (7)
  1. INDERAL LA [Suspect]
     Indication: VENTRICULAR EXTRASYSTOLES
     Route: 048
     Dates: end: 20070101
  2. LASIX [Concomitant]
  3. PROTONIX [Concomitant]
     Dosage: UNSPECIFIED
     Route: 042
     Dates: start: 20071007, end: 20071007
  4. ZETIA [Concomitant]
  5. LEVOTHYROXINE SODIUM [Concomitant]
  6. POTASSIUM CHLORIDE [Concomitant]
  7. LIPITOR [Concomitant]

REACTIONS (1)
  - HYPERTENSION [None]
